FAERS Safety Report 10331811 (Version 1)
Quarter: 2014Q3

REPORT INFORMATION
  Report Type: Spontaneous
  Country: US (occurrence: None)
  Receive Date: 20140721
  Receipt Date: 20140721
  Transmission Date: 20150326
  Serious: Yes (Hospitalization)
  Sender: FDA-Public Use
  Company Number: None

PATIENT
  Sex: Male
  Weight: 67.61 kg

DRUGS (19)
  1. VITAMIN D [Concomitant]
     Active Substance: CHOLECALCIFEROL
  2. SOFOSBUVIR [Suspect]
     Active Substance: SOFOSBUVIR
     Indication: HEPATITIS C
     Route: 048
     Dates: start: 20140102, end: 20140619
  3. PENICILLIN [Concomitant]
     Active Substance: PENICILLIN
  4. SIMETHOCONE [Concomitant]
  5. MULTIVITAMIN [Concomitant]
     Active Substance: VITAMINS
  6. ZOFRAN [Concomitant]
     Active Substance: ONDANSETRON HYDROCHLORIDE
  7. CALCIUM CITRATE [Concomitant]
     Active Substance: CALCIUM CITRATE
  8. VAGOMAOX [Concomitant]
  9. MORPHINE [Concomitant]
     Active Substance: MORPHINE
  10. LYRICA [Concomitant]
     Active Substance: PREGABALIN
  11. CLINDAMYCIN [Concomitant]
     Active Substance: CLINDAMYCIN\CLINDAMYCIN PHOSPHATE
  12. VANCOMYCIN [Concomitant]
     Active Substance: VANCOMYCIN
  13. RIBAVIRIN. [Suspect]
     Active Substance: RIBAVIRIN
     Indication: HEPATITIS C
     Route: 048
     Dates: start: 20140102, end: 20140619
  14. ASPIRIN. [Concomitant]
     Active Substance: ASPIRIN
  15. MAGNESIUM SULFATE [Concomitant]
     Active Substance: MAGNESIUM SULFATE
  16. MARIJUANA [Concomitant]
     Active Substance: CANNABIS SATIVA SUBSP. INDICA TOP
  17. CLINDAMYCIN [Suspect]
     Active Substance: CLINDAMYCIN\CLINDAMYCIN PHOSPHATE
  18. MEDROL [Concomitant]
     Active Substance: METHYLPREDNISOLONE
  19. SILIBININ [Concomitant]
     Active Substance: SILIBININ

REACTIONS (5)
  - Rectal haemorrhage [None]
  - Nausea [None]
  - Vomiting [None]
  - Abdominal pain [None]
  - Diarrhoea [None]

NARRATIVE: CASE EVENT DATE: 20140310
